FAERS Safety Report 10856055 (Version 5)
Quarter: 2015Q2

REPORT INFORMATION
  Report Type: Report from Study
  Country: ES (occurrence: ES)
  Receive Date: 20150223
  Receipt Date: 20150504
  Transmission Date: 20150821
  Serious: Yes (Hospitalization, Disabling, Other)
  Sender: FDA-Public Use
  Company Number: PHHY2015ES017614

PATIENT
  Age: 37 Year
  Sex: Female

DRUGS (3)
  1. GILENYA [Suspect]
     Active Substance: FINGOLIMOD HYDROCHLORIDE
     Indication: RELAPSING-REMITTING MULTIPLE SCLEROSIS
     Dosage: 0.5 MG, QD
     Route: 048
     Dates: start: 20120830, end: 20150211
  2. GILENYA [Suspect]
     Active Substance: FINGOLIMOD HYDROCHLORIDE
     Dosage: UNK
     Route: 048
     Dates: start: 20150406
  3. LIORESAL [Concomitant]
     Active Substance: BACLOFEN
     Indication: MUSCLE SPASTICITY
     Dosage: 10 MG, QD
     Route: 048
     Dates: start: 20120124

REACTIONS (21)
  - PO2 decreased [Recovered/Resolved]
  - Influenza B virus test positive [Recovered/Resolved]
  - Productive cough [Recovered/Resolved]
  - Sputum purulent [Recovered/Resolved]
  - Red blood cell count decreased [Recovered/Resolved]
  - Dyspnoea [Recovered/Resolved]
  - Blood pH increased [Recovered/Resolved]
  - Monocyte percentage increased [Recovered/Resolved]
  - Eosinophil count decreased [Recovered/Resolved]
  - Nitrite urine present [Recovered/Resolved]
  - Pneumonia [Recovered/Resolved]
  - C-reactive protein increased [Recovered/Resolved]
  - White blood cell count increased [Recovered/Resolved]
  - Lymphopenia [Recovered/Resolved]
  - Red blood cells urine positive [Recovered/Resolved]
  - Neutrophil count increased [Recovered/Resolved]
  - Protein total decreased [Recovered/Resolved]
  - Haemoglobin urine present [Recovered/Resolved]
  - Blood creatinine decreased [Recovered/Resolved]
  - Platelet count increased [Recovered/Resolved]
  - Alanine aminotransferase increased [Recovered/Resolved]

NARRATIVE: CASE EVENT DATE: 20150123
